FAERS Safety Report 18849133 (Version 2)
Quarter: 2021Q1

REPORT INFORMATION
  Report Type: Report from Study
  Country: CA (occurrence: CA)
  Receive Date: 20210204
  Receipt Date: 20210216
  Transmission Date: 20210419
  Serious: Yes (Other)
  Sender: FDA-Public Use
  Company Number: CA-JNJFOC-20210127026

PATIENT
  Sex: Female

DRUGS (9)
  1. TRACLEER [Suspect]
     Active Substance: BOSENTAN
     Indication: PULMONARY ARTERIAL HYPERTENSION
     Route: 065
     Dates: start: 20201211, end: 20210124
  2. UPTRAVI [Suspect]
     Active Substance: SELEXIPAG
     Indication: PULMONARY ARTERIAL HYPERTENSION
     Route: 065
     Dates: start: 20161201
  3. LASIX [Concomitant]
     Active Substance: FUROSEMIDE
  4. LEVOTHYROXINE. [Concomitant]
     Active Substance: LEVOTHYROXINE
  5. REVATIO [Suspect]
     Active Substance: SILDENAFIL CITRATE
     Indication: PULMONARY ARTERIAL HYPERTENSION
     Route: 048
     Dates: start: 20161016
  6. DIGOXIN. [Concomitant]
     Active Substance: DIGOXIN
  7. LANSOPRAZOLE. [Concomitant]
     Active Substance: LANSOPRAZOLE
  8. REVATIO [Suspect]
     Active Substance: SILDENAFIL CITRATE
     Indication: CONNECTIVE TISSUE DISORDER
     Route: 048
  9. APIXABAN [Concomitant]
     Active Substance: APIXABAN

REACTIONS (6)
  - Headache [Unknown]
  - Off label use [Unknown]
  - Product use in unapproved indication [Unknown]
  - Peripheral swelling [Unknown]
  - Pain in extremity [Unknown]
  - Sinus disorder [Unknown]
